FAERS Safety Report 17801458 (Version 1)
Quarter: 2020Q2

REPORT INFORMATION
  Report Type: Spontaneous
  Country: US (occurrence: US)
  Receive Date: 20200519
  Receipt Date: 20200519
  Transmission Date: 20200714
  Serious: Yes (Hospitalization, Other)
  Sender: FDA-Public Use
  Company Number: US-TEVA-2020-US-1236516

PATIENT
  Age: 56 Year
  Sex: Female

DRUGS (8)
  1. AUSTEDO [Suspect]
     Active Substance: DEUTETRABENAZINE
     Indication: TARDIVE DYSKINESIA
     Dosage: 24 MILLIGRAM DAILY;
     Route: 048
     Dates: start: 20191011
  2. AMLODIPINE BESYLATE 10 MG TABLET [Concomitant]
     Active Substance: AMLODIPINE BESYLATE
     Route: 065
  3. CLONAZEPAM 0.125 MG TAB RAPDIS [Concomitant]
     Route: 065
  4. CYCLOBENZAPRINE HCL 10 MG TABLET [Concomitant]
     Route: 065
  5. MELOXICAM 15 MG TABLET [Concomitant]
     Active Substance: MELOXICAM
     Route: 065
  6. LIPITOR 10 MG TABLET [Concomitant]
     Route: 065
  7. ZOLOFT 100 MG TABLET [Concomitant]
     Route: 065
  8. SEROQUEL 100 MG TABLET [Concomitant]
     Route: 048

REACTIONS (1)
  - Cerebrovascular accident [Unknown]

NARRATIVE: CASE EVENT DATE: 20200510
